FAERS Safety Report 17271996 (Version 1)
Quarter: 2020Q1

REPORT INFORMATION
  Report Type: Spontaneous
  Country: US (occurrence: US)
  Receive Date: 20200115
  Receipt Date: 20200115
  Transmission Date: 20200409
  Serious: Yes (Other)
  Sender: FDA-Public Use
  Company Number: US-PFIZER INC-2020011630

PATIENT
  Age: 58 Year
  Sex: Male

DRUGS (5)
  1. XANAX [Suspect]
     Active Substance: ALPRAZOLAM
     Dosage: 4 MG, UNK
  2. XANAX [Suspect]
     Active Substance: ALPRAZOLAM
     Dosage: 10 MG, UNK
  3. XANAX [Suspect]
     Active Substance: ALPRAZOLAM
     Dosage: 6 MG, UNK
  4. XANAX [Suspect]
     Active Substance: ALPRAZOLAM
     Dosage: 6 MG, UNK
  5. XANAX [Suspect]
     Active Substance: ALPRAZOLAM
     Dosage: UNK, A LOW DOSE

REACTIONS (4)
  - Disease recurrence [Unknown]
  - Product prescribing error [Unknown]
  - Upper limb fracture [Unknown]
  - Panic attack [Unknown]
